FAERS Safety Report 12635807 (Version 3)
Quarter: 2016Q4

REPORT INFORMATION
  Report Type: Spontaneous
  Country: US (occurrence: US)
  Receive Date: 20160809
  Receipt Date: 20161214
  Transmission Date: 20170207
  Serious: No
  Sender: FDA-Public Use
  Company Number: US-PFIZER INC-2016372905

PATIENT
  Age: 60 Year
  Sex: Female

DRUGS (3)
  1. ASPIRIN. [Concomitant]
     Active Substance: ASPIRIN
     Dosage: UNK
  2. XELJANZ [Suspect]
     Active Substance: TOFACITINIB CITRATE
     Indication: RHEUMATOID ARTHRITIS
     Dosage: 5 MG, 2X/DAY
     Route: 048
  3. MELOXICAM. [Concomitant]
     Active Substance: MELOXICAM
     Dosage: UNK

REACTIONS (12)
  - Vision blurred [Unknown]
  - Oral mucosal blistering [Unknown]
  - Oral pain [Unknown]
  - Dizziness [Unknown]
  - Bronchitis [Recovered/Resolved]
  - Gingival disorder [Unknown]
  - Blood cholesterol increased [Unknown]
  - Back pain [Unknown]
  - Hypertension [Unknown]
  - Headache [Unknown]
  - Inflammation [Unknown]
  - Rheumatoid lung [Unknown]

NARRATIVE: CASE EVENT DATE: 20160801
